FAERS Safety Report 16236147 (Version 4)
Quarter: 2021Q1

REPORT INFORMATION
  Report Type: Spontaneous
  Country: US (occurrence: US)
  Receive Date: 20190425
  Receipt Date: 20210106
  Transmission Date: 20210419
  Serious: Yes (Other)
  Sender: FDA-Public Use
  Company Number: US-AMGEN-USASP2019063776

PATIENT
  Age: 63 Year
  Sex: Female

DRUGS (1)
  1. ENBREL [Suspect]
     Active Substance: ETANERCEPT
     Indication: PRODUCT USED FOR UNKNOWN INDICATION
     Dosage: UNK, WEEKLY (ON TUESDAYS)
     Route: 065
     Dates: end: 2013

REACTIONS (10)
  - Infection [Unknown]
  - Condition aggravated [Recovered/Resolved]
  - Rash pruritic [Unknown]
  - Joint swelling [Recovering/Resolving]
  - Rash erythematous [Unknown]
  - Therapeutic product effect decreased [Unknown]
  - Breast cancer stage I [Unknown]
  - Rash macular [Unknown]
  - Arthralgia [Recovering/Resolving]
  - Viral infection [Unknown]

NARRATIVE: CASE EVENT DATE: 2013
